FAERS Safety Report 8420553-6 (Version None)
Quarter: 2012Q2

REPORT INFORMATION
  Report Type: 
  Country: None (occurrence: None)
  Receive Date: 20120608
  Receipt Date: 20120604
  Transmission Date: 20120825
  Serious: Yes (Hospitalization)
  Sender: FDA-Public Use
  Company Number: US-BIOGENIDEC-2011BI021277

PATIENT
  Age: 54 Year
  Sex: Female

DRUGS (2)
  1. TYSABRI [Suspect]
     Indication: MULTIPLE SCLEROSIS
     Route: 042
     Dates: start: 20070221
  2. EXALGO [Concomitant]
     Indication: PAIN
     Dates: start: 20120601

REACTIONS (5)
  - FLATULENCE [None]
  - BILE DUCT STENOSIS [None]
  - ABDOMINAL NEOPLASM [None]
  - DIZZINESS [None]
  - VOMITING [None]
